FAERS Safety Report 18691142 (Version 3)
Quarter: 2021Q2

REPORT INFORMATION
  Report Type: Spontaneous
  Country: US (occurrence: US)
  Receive Date: 20210101
  Receipt Date: 20210401
  Transmission Date: 20210717
  Serious: No
  Sender: FDA-Public Use
  Company Number: US-ASTRAZENECA-2020SF63783

PATIENT
  Age: 438 Month
  Sex: Female

DRUGS (1)
  1. SYMBICORT [Suspect]
     Active Substance: BUDESONIDE\FORMOTEROL FUMARATE DIHYDRATE
     Indication: ASTHMA
     Dosage: 160/4.5 MCG, 2 PUFFS TWICE A DAY
     Route: 055
     Dates: start: 2020

REACTIONS (7)
  - Drug ineffective [Unknown]
  - Asthma [Unknown]
  - Throat irritation [Unknown]
  - Oropharyngeal pain [Unknown]
  - Drug delivery system malfunction [Unknown]
  - Intentional device misuse [Not Recovered/Not Resolved]
  - Yawning [Unknown]

NARRATIVE: CASE EVENT DATE: 202011
